FAERS Safety Report 9720859 (Version 10)
Quarter: 2015Q1

REPORT INFORMATION
  Report Type: Report from Study
  Country: US (occurrence: US)
  Receive Date: 20131129
  Receipt Date: 20150225
  Transmission Date: 20150721
  Serious: Yes (Hospitalization, Other)
  Sender: FDA-Public Use
  Company Number: US-SANOFI-AVENTIS-2013SA083973

PATIENT
  Age: 69 Year
  Sex: Female

DRUGS (6)
  1. VITAMIN D/CALCIUM [Concomitant]
     Indication: MALNUTRITION
     Dates: start: 2006
  2. AVONEX [Concomitant]
     Active Substance: INTERFERON BETA-1A
     Indication: MULTIPLE SCLEROSIS
  3. AUBAGIO [Suspect]
     Active Substance: TERIFLUNOMIDE
     Indication: MULTIPLE SCLEROSIS
     Dosage: TAKEN FROM: 12-14 DAYS.
     Route: 048
     Dates: start: 20130802
  4. DILANTIN [Concomitant]
     Active Substance: PHENYTOIN
     Indication: SEIZURE
     Dates: start: 2006
  5. PRILOSEC [Concomitant]
     Active Substance: OMEPRAZOLE MAGNESIUM
     Indication: BARRETT^S OESOPHAGUS
     Dates: start: 2006
  6. PANTHENOL/RETINOL/THIAMINE HYDROCHLORIDE/ASCORBIC ACID/ERGOCALCIFEROL/FOLIC ACID/RIBOFLAVIN/NICOTINA [Concomitant]
     Indication: VITAMIN SUPPLEMENTATION

REACTIONS (14)
  - Barrett^s oesophagus [Unknown]
  - Posture abnormal [Unknown]
  - Diarrhoea [Unknown]
  - Urinary tract infection [Unknown]
  - Abasia [Not Recovered/Not Resolved]
  - Blister [Unknown]
  - Hearing impaired [Unknown]
  - Pain [Not Recovered/Not Resolved]
  - Memory impairment [Unknown]
  - Asthma [Unknown]
  - Seasonal allergy [Unknown]
  - Hospitalisation [Unknown]
  - Constipation [Unknown]
  - Gastrooesophageal reflux disease [Unknown]

NARRATIVE: CASE EVENT DATE: 20130923
